FAERS Safety Report 10155337 (Version 1)
Quarter: 2014Q2

REPORT INFORMATION
  Report Type: Report from Study
  Country: US (occurrence: US)
  Receive Date: 20140506
  Receipt Date: 20140506
  Transmission Date: 20141212
  Serious: Yes (Hospitalization, Other)
  Sender: FDA-Public Use
  Company Number: US-ABBVIE-14P-163-1231799-00

PATIENT
  Sex: Male

DRUGS (3)
  1. MARINOL [Suspect]
     Indication: NAUSEA
     Route: 048
     Dates: start: 2003, end: 20131225
  2. MARINOL [Suspect]
     Indication: PAIN
  3. MARINOL [Suspect]
     Indication: FIBROMYALGIA

REACTIONS (8)
  - Gastroenteritis [Recovering/Resolving]
  - Pituitary tumour [Recovered/Resolved]
  - Brain tumour operation [Recovered/Resolved]
  - Weight decreased [Not Recovered/Not Resolved]
  - Nausea [Not Recovered/Not Resolved]
  - Pain [Not Recovered/Not Resolved]
  - Hypophagia [Not Recovered/Not Resolved]
  - Nervous system disorder [Unknown]
